FAERS Safety Report 5119487-4 (Version None)
Quarter: 2006Q3

REPORT INFORMATION
  Report Type: 
  Country: None (occurrence: None)
  Receive Date: 20060929
  Receipt Date: 20060918
  Transmission Date: 20061208
  Serious: Yes (Other)
  Sender: FDA-Public Use
  Company Number: 230037

PATIENT
  Age: 50 Year
  Sex: Female

DRUGS (3)
  1. AVASTIN [Suspect]
     Indication: BREAST CANCER METASTATIC
     Dosage: Q2W
     Dates: start: 20051001
  2. TRASTUZUMAB(TRASTUZUMAB) PWDR + SOLVENT,INFUSION SOLN, 440MG [Suspect]
     Indication: BREAST CANCER METASTATIC
     Dosage: Q2W
     Dates: start: 20051001
  3. TAXOTERE [Suspect]
     Indication: BREAST CANCER METASTATIC
     Dates: start: 20051001, end: 20060401

REACTIONS (6)
  - ALOPECIA [None]
  - CRYING [None]
  - DEAFNESS BILATERAL [None]
  - DYSPHONIA [None]
  - ONYCHOMADESIS [None]
  - RHINORRHOEA [None]
